FAERS Safety Report 5106294-1 (Version None)
Quarter: 2006Q3

REPORT INFORMATION
  Report Type: 
  Country: None (occurrence: None)
  Receive Date: 20060918
  Receipt Date: 20060904
  Transmission Date: 20061208
  Serious: Yes (Death, Life-Threatening, Hospitalization)
  Sender: FDA-Public Use
  Company Number: IL-AMGEN-UK192167

PATIENT
  Age: 50 Year
  Sex: Male

DRUGS (10)
  1. NEULASTA [Suspect]
     Indication: CHEMOTHERAPY
     Route: 065
  2. MABTHERA [Concomitant]
     Route: 065
  3. CYCLOPHOSPHAMIDE [Concomitant]
     Route: 041
  4. DOXORUBICIN HYDROCHLORIDE [Concomitant]
     Route: 040
  5. VINCRISTINE [Concomitant]
     Route: 041
  6. DEXAMETHASONE TAB [Concomitant]
     Route: 065
  7. METHOTREXATE [Concomitant]
     Route: 041
  8. FOLINIC ACID [Concomitant]
     Route: 042
  9. SODIUM BICARBONATE [Concomitant]
     Route: 048
  10. CYTARABINE [Concomitant]
     Route: 065

REACTIONS (3)
  - DRUG INEFFECTIVE [None]
  - NEUTROPENIA [None]
  - SEPTIC SHOCK [None]
